FAERS Safety Report 4950041-0 (Version None)
Quarter: 2006Q1

REPORT INFORMATION
  Report Type: 
  Country: None (occurrence: None)
  Receive Date: 20060320
  Receipt Date: 20060320
  Transmission Date: 20060701
  Serious: Yes (Other)
  Sender: FDA-Public Use
  Company Number: None

PATIENT
  Age: 77 Year
  Sex: Female
  Weight: 63.5036 kg

DRUGS (1)
  1. REGLAN [Suspect]
     Indication: GASTROOESOPHAGEAL REFLUX DISEASE
     Dosage: 1 TABLET  DAILY  PO
     Route: 048
     Dates: start: 20050101, end: 20051101

REACTIONS (5)
  - INSOMNIA [None]
  - MUSCLE RIGIDITY [None]
  - PARKINSON'S DISEASE [None]
  - PARKINSONIAN GAIT [None]
  - TREMOR [None]
